FAERS Safety Report 6253913-2 (Version None)
Quarter: 2009Q3

REPORT INFORMATION
  Report Type: 
  Country: None (occurrence: None)
  Receive Date: 20090701
  Receipt Date: 20090701
  Transmission Date: 20100115
  Serious: Yes (Hospitalization)
  Sender: FDA-Public Use
  Company Number: None

PATIENT
  Age: 23 Year
  Sex: Male
  Weight: 68.9467 kg

DRUGS (1)
  1. BACTRIM DS [Suspect]
     Indication: ABSCESS
     Route: 048

REACTIONS (4)
  - NO THERAPEUTIC RESPONSE [None]
  - RASH [None]
  - URINE ANALYSIS ABNORMAL [None]
  - WHITE BLOOD CELL COUNT DECREASED [None]
